FAERS Safety Report 8905576 (Version 1)
Quarter: 2012Q4

REPORT INFORMATION
  Report Type: 
  Country: US (occurrence: US)
  Receive Date: 20121109
  Receipt Date: 20121109
  Transmission Date: 20130627
  Serious: Yes (Hospitalization, Other)
  Sender: FDA-Public Use
  Company Number: PHHY2012US102551

PATIENT
  Age: 48 Year
  Sex: Female

DRUGS (8)
  1. GILENYA [Suspect]
     Indication: MULTIPLE SCLEROSIS
     Dosage: 0.5 mg, QD
     Route: 048
     Dates: start: 20110113
  2. LORTAB [Suspect]
     Indication: PAIN
     Dosage: 10-325 mg, BID
  3. DESITIN [Suspect]
  4. SKELAXIN [Concomitant]
     Dosage: 800 mg, TID
  5. LAMICTAL [Concomitant]
     Dosage: 150 mg, QID
  6. PREDNISONE [Concomitant]
     Dosage: 20 mg, PRN
  7. KEPPRA [Concomitant]
     Dosage: 500 mg, TID
  8. NUEDEXTA [Concomitant]
     Dosage: UNK UKN, UNK

REACTIONS (3)
  - Status epilepticus [Recovered/Resolved]
  - Progressive multiple sclerosis [Not Recovered/Not Resolved]
  - Multiple sclerosis relapse [Not Recovered/Not Resolved]
